FAERS Safety Report 25023901 (Version 2)
Quarter: 2025Q1

REPORT INFORMATION
  Report Type: Report from Study
  Country: US (occurrence: US)
  Receive Date: 20250228
  Receipt Date: 20250318
  Transmission Date: 20250409
  Serious: No
  Sender: Day One Biopharmaceuticals
  Company Number: US-Day One Biopharmaceuticals Inc.-2025US000268

PATIENT

DRUGS (1)
  1. OJEMDA [Suspect]
     Active Substance: TOVORAFENIB
     Indication: Glioma
     Dosage: 600 MG, TAKING 3 IN THE MORNING AND 3 AT LUNCH, QW
     Route: 048
     Dates: start: 20250217

REACTIONS (7)
  - Arthralgia [Recovering/Resolving]
  - Myalgia [Recovering/Resolving]
  - Musculoskeletal stiffness [Unknown]
  - Peripheral swelling [Unknown]
  - Off label use [Unknown]
  - Product administration error [Unknown]
  - Headache [Unknown]

NARRATIVE: CASE EVENT DATE: 20250201
